FAERS Safety Report 5472212-X (Version None)
Quarter: 2007Q3

REPORT INFORMATION
  Report Type: 
  Country: None (occurrence: None)
  Receive Date: 20070926
  Receipt Date: 20070911
  Transmission Date: 20080115
  Serious: Yes (Other)
  Sender: FDA-Public Use
  Company Number: 2007BI017745

PATIENT
  Age: 56 Year
  Sex: Male

DRUGS (1)
  1. NATALIZUMAB [Suspect]
     Indication: MULTIPLE SCLEROSIS
     Dosage: 300 MG;QM;IV
     Route: 042
     Dates: start: 20070621, end: 20070816

REACTIONS (4)
  - CYANOSIS [None]
  - DYSPNOEA [None]
  - FLUSHING [None]
  - WHEEZING [None]
